FAERS Safety Report 5787392-6 (Version None)
Quarter: 2008Q2

REPORT INFORMATION
  Report Type: 
  Country: None (occurrence: None)
  Receive Date: 20080620
  Receipt Date: 20080612
  Transmission Date: 20081010
  Serious: Yes (Other)
  Sender: FDA-Public Use
  Company Number: 2008SP011632

PATIENT
  Age: 58 Year
  Sex: Female

DRUGS (2)
  1. RIBAVIRIN [Suspect]
     Indication: HEPATITIS C
     Dosage: PO
     Route: 048
     Dates: start: 20040101, end: 20040101
  2. PEGASYS [Suspect]
     Indication: HEPATITIS C
     Dates: start: 20040101, end: 20040101

REACTIONS (11)
  - ARTHRALGIA [None]
  - CONDITION AGGRAVATED [None]
  - DEPRESSION [None]
  - FALL [None]
  - HALLUCINATION [None]
  - INSOMNIA [None]
  - MYALGIA [None]
  - OXYGEN SATURATION DECREASED [None]
  - PSYCHOTIC DISORDER [None]
  - SOMNAMBULISM [None]
  - SUICIDAL IDEATION [None]
